FAERS Safety Report 21410971 (Version 1)
Quarter: 2022Q4

REPORT INFORMATION
  Report Type: Spontaneous
  Country: US (occurrence: None)
  Receive Date: 20221004
  Receipt Date: 20221004
  Transmission Date: 20230113
  Serious: Yes (Other)
  Sender: FDA-Public Use
  Company Number: None

PATIENT
  Age: 55 Year
  Sex: Male
  Weight: 90.72 kg

DRUGS (1)
  1. VUITY [Suspect]
     Active Substance: PILOCARPINE HYDROCHLORIDE
     Dates: start: 20221003, end: 20221003

REACTIONS (5)
  - Vision blurred [None]
  - Headache [None]
  - Nausea [None]
  - Visual impairment [None]
  - Feeling abnormal [None]

NARRATIVE: CASE EVENT DATE: 20221003
